FAERS Safety Report 7255671-1 (Version None)
Quarter: 2011Q1

REPORT INFORMATION
  Report Type: 
  Country: None (occurrence: None)
  Receive Date: 20110129
  Receipt Date: 20100514
  Transmission Date: 20110831
  Serious: No
  Sender: FDA-Public Use
  Company Number: PR-ABBOTT-10P-131-0644906-00

PATIENT
  Sex: Female

DRUGS (9)
  1. GLYBURIDE [Concomitant]
     Indication: DIABETES MELLITUS
     Dosage: HALF TABLET DAILY
     Route: 048
  2. CRESTOR [Concomitant]
     Indication: HYPERCHOLESTEROLAEMIA
     Route: 048
     Dates: start: 20100401
  3. AVANDAMET [Concomitant]
     Indication: DIABETES MELLITUS
     Dosage: 2/250MG HALF TABLET DAILY
     Route: 048
  4. ATACAND [Concomitant]
     Indication: HYPERTENSION
     Route: 048
  5. HUMIRA [Suspect]
     Indication: RHEUMATOID ARTHRITIS
     Route: 058
  6. XANAX [Concomitant]
     Indication: ANXIETY
     Dosage: 1 TABLET DAILY AS NEEDED
     Route: 048
  7. ASPIRIN [Concomitant]
     Indication: PROPHYLAXIS
     Route: 048
  8. XANAX [Concomitant]
     Indication: INSOMNIA
  9. NORVASC [Concomitant]
     Indication: HYPERTENSION
     Route: 048

REACTIONS (7)
  - MUSCLE RIGIDITY [None]
  - HYPOAESTHESIA [None]
  - ASTHENIA [None]
  - CHEST DISCOMFORT [None]
  - DIZZINESS [None]
  - NAUSEA [None]
  - HYPERHIDROSIS [None]
